FAERS Safety Report 14004519 (Version 1)
Quarter: 2017Q3

REPORT INFORMATION
  Report Type: Spontaneous
  Country: DE (occurrence: DE)
  Receive Date: 20170922
  Receipt Date: 20170922
  Transmission Date: 20171128
  Serious: Yes (Hospitalization)
  Sender: FDA-Public Use
  Company Number: DE-ACCORD-058903

PATIENT
  Age: 77 Year
  Sex: Male

DRUGS (2)
  1. FOLSAEURE [Concomitant]
     Active Substance: FOLIC ACID
     Indication: RHEUMATOID ARTHRITIS
     Route: 048
  2. METHOTREXATE. [Suspect]
     Active Substance: METHOTREXATE
     Indication: RHEUMATOID ARTHRITIS
     Route: 058
     Dates: start: 2005

REACTIONS (1)
  - Extranodal marginal zone B-cell lymphoma (MALT type) [Unknown]

NARRATIVE: CASE EVENT DATE: 20161201
